FAERS Safety Report 7866231-3 (Version None)
Quarter: 2011Q4

REPORT INFORMATION
  Report Type: 
  Country: None (occurrence: None)
  Receive Date: 20111028
  Receipt Date: 20110516
  Transmission Date: 20120403
  Serious: No
  Sender: FDA-Public Use
  Company Number: US-GLAXOSMITHKLINE-A0927530A

PATIENT
  Age: 40 Year
  Sex: Female

DRUGS (4)
  1. PROAIR HFA [Concomitant]
  2. SINGULAIR [Concomitant]
  3. ADVAIR DISKUS 100/50 [Suspect]
     Indication: ASTHMA
     Dosage: 1PUFF TWICE PER DAY
     Route: 055
     Dates: start: 20050101
  4. SINUS MEDICATION [Concomitant]

REACTIONS (3)
  - PRODUCT QUALITY ISSUE [None]
  - CHEST DISCOMFORT [None]
  - THERAPEUTIC RESPONSE DECREASED [None]
